FAERS Safety Report 5513596-3 (Version None)
Quarter: 2007Q4

REPORT INFORMATION
  Report Type: 
  Country: None (occurrence: None)
  Receive Date: 20071112
  Receipt Date: 20071107
  Transmission Date: 20080405
  Serious: Yes (Other)
  Sender: FDA-Public Use
  Company Number: US-BOEHRINGER INGELHEIM PHARMACEUTICALS, INC.-2007-BP-18408PF

PATIENT
  Sex: Female

DRUGS (2)
  1. SPIRIVA [Suspect]
  2. ACCUPRIL [Concomitant]

REACTIONS (1)
  - SUICIDAL IDEATION [None]
